FAERS Safety Report 4354333-8 (Version None)
Quarter: 2004Q2

REPORT INFORMATION
  Report Type: 
  Country: None (occurrence: None)
  Receive Date: 20040503
  Receipt Date: 20040420
  Transmission Date: 20050107
  Serious: Yes (Death)
  Sender: FDA-Public Use
  Company Number: 2004026885

PATIENT
  Age: 50 Year
  Sex: Male

DRUGS (1)
  1. SULPERAZON (CEFOPERAZONE, SULBACTAM) [Suspect]
     Indication: SEPSIS
     Dosage: 1 GRAM (BID), INTRAVENOUS
     Route: 042
     Dates: start: 20030901, end: 20030901

REACTIONS (1)
  - SEPSIS [None]
